FAERS Safety Report 8962452 (Version 1)
Quarter: 2012Q4

REPORT INFORMATION
  Report Type: 
  Country: US (occurrence: US)
  Receive Date: 20121214
  Receipt Date: 20121214
  Transmission Date: 20130627
  Serious: Yes (Other)
  Sender: FDA-Public Use
  Company Number: PHHO2012US017763

PATIENT
  Age: 52 Year
  Sex: Female

DRUGS (11)
  1. ZOLEDRONATE [Suspect]
     Indication: BREAST CANCER
     Dosage: 64 mg, UNK
     Dates: start: 20081201
  2. AMOXICILLIN [Concomitant]
  3. CITALOPRAM HYDROBROMIDE [Concomitant]
  4. ENBREL [Concomitant]
  5. FOLIC ACID [Concomitant]
  6. LETROZOL [Concomitant]
  7. MAGNESIUM [Concomitant]
  8. NITROFURANTOIN [Concomitant]
  9. OXYCODONE [Concomitant]
  10. SYNTHROID [Concomitant]
  11. TRIAMCINOLONE [Concomitant]

REACTIONS (1)
  - Osteonecrosis of jaw [Not Recovered/Not Resolved]
